FAERS Safety Report 12563947 (Version 7)
Quarter: 2018Q4

REPORT INFORMATION
  Report Type: Spontaneous
  Country: DE (occurrence: DE)
  Receive Date: 20160717
  Receipt Date: 20181015
  Transmission Date: 20190204
  Serious: Yes (Death)
  Sender: FDA-Public Use
  Company Number: DE-JNJFOC-20160705968

PATIENT
  Age: 25 Year
  Sex: Female
  Weight: 55 kg

DRUGS (5)
  1. LOPERAMID [Suspect]
     Active Substance: LOPERAMIDE
     Indication: GASTROENTERITIS
     Dosage: TWO TABLETS IN EVENING OF 22-JUN-2016 AND 1 TABLET ON THE FOLLOWING MORNING.
     Route: 048
     Dates: start: 20160622, end: 20160623
  2. CHININ [Interacting]
     Active Substance: QUININE HYDROCHLORIDE
     Indication: PRODUCT USED FOR UNKNOWN INDICATION
     Route: 048
     Dates: start: 20160622, end: 20160622
  3. LOPERAMID [Suspect]
     Active Substance: LOPERAMIDE
     Route: 048
  4. IBUPROFEN. [Suspect]
     Active Substance: IBUPROFEN
     Route: 065
  5. IBUPROFEN. [Suspect]
     Active Substance: IBUPROFEN
     Indication: PAIN
     Dosage: DURING NIGHT
     Route: 065

REACTIONS (12)
  - Organic brain syndrome [Fatal]
  - Drug interaction [Fatal]
  - Aspiration [Fatal]
  - Resuscitation [Fatal]
  - Sedation [Fatal]
  - Toxicity to various agents [Fatal]
  - Circulatory collapse [Fatal]
  - Disturbance in attention [Fatal]
  - Brain injury [Fatal]
  - Food interaction [Fatal]
  - Coma [Fatal]
  - Drug effect increased [Fatal]

NARRATIVE: CASE EVENT DATE: 20160623
